FAERS Safety Report 14968079 (Version 2)
Quarter: 2018Q3

REPORT INFORMATION
  Report Type: Spontaneous
  Country: US (occurrence: US)
  Receive Date: 20180604
  Receipt Date: 20180705
  Transmission Date: 20181010
  Serious: No
  Sender: FDA-Public Use
  Company Number: US-TEVA-2018-US-901271

PATIENT
  Sex: Male

DRUGS (1)
  1. FLUTICASONE W/SALMETEROL [Suspect]
     Active Substance: FLUTICASONE PROPIONATE\SALMETEROL XINAFOATE
     Dosage: 113 MCG / 14 MCG

REACTIONS (1)
  - Drug ineffective [Unknown]
